FAERS Safety Report 4494472-4 (Version None)
Quarter: 2004Q4

REPORT INFORMATION
  Report Type: 
  Country: None (occurrence: None)
  Receive Date: 20041102
  Receipt Date: 20041019
  Transmission Date: 20050328
  Serious: Yes (Other)
  Sender: FDA-Public Use
  Company Number: 209278

PATIENT
  Age: 32 Year
  Sex: Female

DRUGS (4)
  1. XOLAIR 9OMALIZUMAB) PWDR + SOLVENT INJECTION SOLN 150 MG [Suspect]
     Indication: ASTHMA
     Dosage: 375 MG, Q2W, SUBCUTANEOUS
     Route: 058
     Dates: start: 20040920
  2. INHALED CORTICOSTERIOD (CORTICOSTEROID) [Concomitant]
  3. LONG-ACTING BETA-2 AGONIST NOS (LONG-ACTING BETA-2 AGONIST NOS) [Concomitant]
  4. ORAL STEROIDS [Concomitant]

REACTIONS (7)
  - ACCIDENTAL OVERDOSE [None]
  - ASTHENIA [None]
  - CHEST PAIN [None]
  - DIARRHOEA [None]
  - MEDICATION ERROR [None]
  - PYREXIA [None]
  - VOMITING [None]
